FAERS Safety Report 11120673 (Version 2)
Quarter: 2015Q2

REPORT INFORMATION
  Report Type: Spontaneous
  Country: JP (occurrence: JP)
  Receive Date: 20150519
  Receipt Date: 20150609
  Transmission Date: 20150821
  Serious: Yes (Death, Life-Threatening, Other)
  Sender: FDA-Public Use
  Company Number: JP-BAYER-2015-102182

PATIENT
  Age: 59 Year
  Sex: Female
  Weight: 35 kg

DRUGS (11)
  1. MAGNEVIST [Suspect]
     Active Substance: GADOPENTETATE DIMEGLUMINE
     Indication: NUCLEAR MAGNETIC RESONANCE IMAGING ABDOMINAL
  2. FENTANYL CITRATE. [Concomitant]
     Active Substance: FENTANYL CITRATE
     Indication: CANCER PAIN
     Dosage: 2 MG, QD
     Route: 062
     Dates: start: 20150128, end: 20150331
  3. MAGLAX [Concomitant]
     Active Substance: MAGNESIUM OXIDE
     Indication: CONSTIPATION
     Dosage: 990 MG, QD
     Route: 048
     Dates: start: 201401, end: 20150330
  4. MAGNEVIST [Suspect]
     Active Substance: GADOPENTETATE DIMEGLUMINE
     Indication: NUCLEAR MAGNETIC RESONANCE IMAGING BRAIN
     Dosage: 7 ML, ONCE
     Route: 042
     Dates: start: 20150330, end: 20150330
  5. TAKEPRON [Concomitant]
     Active Substance: LANSOPRAZOLE
     Indication: PROPHYLAXIS AGAINST GASTROINTESTINAL ULCER
     Dosage: 15 MG, QD
     Route: 048
     Dates: start: 20150113, end: 20150330
  6. KN 1A [Concomitant]
     Indication: PROPHYLAXIS AGAINST DEHYDRATION
     Dosage: DAILY DOSE 2500 ML
     Route: 041
     Dates: start: 20150128, end: 20150420
  7. MAGNEVIST [Suspect]
     Active Substance: GADOPENTETATE DIMEGLUMINE
     Indication: METASTASES TO CENTRAL NERVOUS SYSTEM
  8. MAGNEVIST [Suspect]
     Active Substance: GADOPENTETATE DIMEGLUMINE
     Indication: UTERINE CANCER
  9. MANNITOL. [Concomitant]
     Active Substance: MANNITOL
     Indication: BRAIN OEDEMA
     Dosage: 600 ML, QD
     Route: 041
     Dates: start: 20150205, end: 20150420
  10. MAXIPIME [Concomitant]
     Active Substance: CEFEPIME HYDROCHLORIDE
     Indication: URINARY TRACT INFECTION
     Dosage: 4 G, QD
     Route: 041
     Dates: start: 20150325, end: 20150331
  11. RINDERON V [Concomitant]
     Active Substance: BETAMETHASONE VALERATE
     Indication: BRAIN OEDEMA
     Dosage: 8 MG, QD
     Route: 042
     Dates: start: 20150106, end: 20150420

REACTIONS (14)
  - Sternal fracture [None]
  - Flushing [Recovering/Resolving]
  - Rib fracture [None]
  - Tachypnoea [Fatal]
  - Candida test positive [None]
  - Pneumonia [Fatal]
  - Hyperkalaemia [None]
  - Anaphylactic shock [Recovering/Resolving]
  - Cardio-respiratory arrest [Recovering/Resolving]
  - Flail chest [None]
  - Pyrexia [Fatal]
  - Pyrexia [None]
  - Cardiac arrest [Fatal]
  - Blood pressure decreased [Fatal]

NARRATIVE: CASE EVENT DATE: 20150330
